FAERS Safety Report 7087037 (Version 6)
Quarter: 2013Q2

REPORT INFORMATION
  Report Type: Spontaneous
  Country: US (occurrence: US)
  Receive Date: 20090820
  Receipt Date: 20130516
  Transmission Date: 20140414
  Serious: Yes (Other)
  Sender: FDA-Public Use
  Company Number: US-PFIZER INC-2009253212

PATIENT
  Age: 63 Year
  Sex: Female
  Weight: 68.03 kg

DRUGS (13)
  1. XANAX [Suspect]
     Indication: SMOKING CESSATION THERAPY
     Dosage: ONE FOURTH OF A 1MG PILL
     Route: 048
     Dates: start: 200908
  2. XANAX [Suspect]
     Dosage: ONE HALF OF 1MG
     Route: 048
  3. XANAX [Suspect]
     Dosage: THREE FOURTH OF A 1MG PILL
     Route: 048
  4. XANAX [Suspect]
     Dosage: UNK
     Route: 048
  5. XANAX [Suspect]
     Dosage: 0.5 MG, 2X/DAY
     Route: 048
     Dates: start: 20090807, end: 2010
  6. XANAX [Suspect]
     Dosage: UNK
     Route: 048
     Dates: start: 2010, end: 2010
  7. CELEXA [Concomitant]
     Dosage: UNK
  8. BUSPAR [Concomitant]
     Dosage: UNK
     Dates: end: 2009
  9. WELLBUTRIN [Concomitant]
     Dosage: UNK
  10. ZYBAN [Concomitant]
     Dosage: UNK
  11. NICOTINE INHALER [Concomitant]
     Dosage: UNK
  12. VITAMINS [Concomitant]
     Dosage: UNK
  13. FLUORIDE [Concomitant]
     Indication: TOOTH DISORDER
     Dosage: UNK

REACTIONS (20)
  - Haemorrhage [Unknown]
  - Cataract [Unknown]
  - Fall [Unknown]
  - Local swelling [Unknown]
  - Virilism [Unknown]
  - Meniscus injury [Unknown]
  - Chondropathy [Unknown]
  - Arthropathy [Unknown]
  - Off label use [Unknown]
  - Drug effect decreased [Unknown]
  - Medication error [Unknown]
  - Joint injury [Unknown]
  - Arterial disorder [Unknown]
  - Nervousness [Unknown]
  - Dizziness [Unknown]
  - Feeling abnormal [Unknown]
  - Burning sensation [Not Recovered/Not Resolved]
  - Peripheral vascular disorder [Unknown]
  - Arthralgia [Unknown]
  - Inflammation [Recovered/Resolved]
